FAERS Safety Report 23897976 (Version 2)
Quarter: 2025Q3

REPORT INFORMATION
  Report Type: Spontaneous
  Country: US (occurrence: US)
  Receive Date: 20240524
  Receipt Date: 20250804
  Transmission Date: 20251021
  Serious: No
  Sender: SANOFI AVENTIS
  Company Number: US-SA-SAC20240520000240

PATIENT
  Age: 24 Year
  Sex: Female

DRUGS (1)
  1. DUPIXENT [Suspect]
     Active Substance: DUPILUMAB
     Indication: Dermatitis atopic
     Dosage: 300 MG, QOW
     Route: 058
     Dates: start: 20230720

REACTIONS (8)
  - Pyrexia [Unknown]
  - Hyperhidrosis [Unknown]
  - Scab [Unknown]
  - Skin discomfort [Unknown]
  - Drug ineffective [Unknown]
  - Rash [Unknown]
  - Erythema [Unknown]
  - Injection site reaction [Unknown]
